FAERS Safety Report 16667325 (Version 6)
Quarter: 2019Q3

REPORT INFORMATION
  Report Type: Spontaneous
  Country: US (occurrence: US)
  Receive Date: 20190805
  Receipt Date: 20190930
  Transmission Date: 20191004
  Serious: Yes (Other)
  Sender: FDA-Public Use
  Company Number: US-PFIZER INC-2019328485

PATIENT
  Age: 71 Year
  Sex: Female
  Weight: 99.79 kg

DRUGS (32)
  1. INDERAL LA [Suspect]
     Active Substance: PROPRANOLOL HYDROCHLORIDE
     Dosage: 60 MG, 3X/DAY
  2. BIOTIN [Concomitant]
     Active Substance: BIOTIN
     Dosage: 1000 MG, UNK
  3. BENADRYL [Concomitant]
     Active Substance: DIPHENHYDRAMINE HYDROCHLORIDE
     Indication: SINUSITIS
     Dosage: 25 MG, EVERY 4 HOURS AS NEEDED
  4. FISH OIL [Concomitant]
     Active Substance: FISH OIL
     Dosage: 1200 MG, 3X/DAY
  5. SYNTHROID [Concomitant]
     Active Substance: LEVOTHYROXINE SODIUM
     Dosage: 25 UG, 1X/DAY (AM)
  6. PREDNISONE. [Concomitant]
     Active Substance: PREDNISONE
     Indication: ILL-DEFINED DISORDER
  7. XIIDRA [Concomitant]
     Active Substance: LIFITEGRAST
     Dosage: 2 GTT, 2X/DAY
     Dates: start: 20171215
  8. CLEOCIN T [Concomitant]
     Active Substance: CLINDAMYCIN PHOSPHATE
     Indication: ACNE
     Dosage: UNK, AS NEEDED (BID (TWO TIMES A DAY) ACNE PRN (AS NEEDED))
     Route: 061
  9. ASPIRIN [ACETYLSALICYLIC ACID] [Concomitant]
     Active Substance: ASPIRIN
     Dosage: 325 MG, 3X/DAY
  10. VITAMIN C [Concomitant]
     Active Substance: ASCORBIC ACID
     Dosage: 500 MG, UNK
  11. VITAMIN D3 [Concomitant]
     Active Substance: CHOLECALCIFEROL
     Dosage: 400 MG, UNK
  12. GERITOL [ASCORBIC ACID;CALCIUM PANTOTHENATE;CYANOCOBALAMIN;FERROUS SUL [Concomitant]
     Dosage: UNK
  13. RED WINE EXTRACT PLUS [Concomitant]
     Dosage: 200 MG, 3X/DAY
  14. INDERAL [Concomitant]
     Active Substance: PROPRANOLOL HYDROCHLORIDE
     Indication: BLOOD PRESSURE INCREASED
     Dosage: 5-10 MG, AS NEEDED
     Dates: start: 2009
  15. INDERAL [Concomitant]
     Active Substance: PROPRANOLOL HYDROCHLORIDE
     Dosage: UNK
  16. LASIX [Concomitant]
     Active Substance: FUROSEMIDE
     Dosage: 20 MG, 2X/DAY (1/2 NOON AND 1/2 6PM)
  17. VITAMIN E [Concomitant]
     Active Substance: .ALPHA.-TOCOPHEROL
     Dosage: 400 MC, DAILY
  18. FOLIC ACID. [Concomitant]
     Active Substance: FOLIC ACID
     Dosage: 1 MG, 1X/DAY (AM)
  19. INDERAL LA [Suspect]
     Active Substance: PROPRANOLOL HYDROCHLORIDE
     Indication: SUPRAVENTRICULAR TACHYCARDIA
     Dosage: 60 MG, 1X/DAY AT 3PM (DURING HIGH STRESS BP ELEVATIONS ADD 10MG EVERY 8 HOURS AS NEEDED)
     Route: 048
     Dates: start: 1978
  20. INDERAL LA [Suspect]
     Active Substance: PROPRANOLOL HYDROCHLORIDE
     Indication: HYPERTENSION
     Dosage: 80 MG, 1X/DAY (IN THE EVENING, AT 6 PM)
     Route: 048
     Dates: start: 20190702, end: 20190731
  21. PREMARIN [Concomitant]
     Active Substance: ESTROGENS, CONJUGATED
     Dosage: 0.625 MG, 1X/DAY (AM)
  22. ESTRATEST HS [Concomitant]
     Active Substance: ESTROGENS, ESTERIFIED\METHYLTESTOSTERONE
     Dosage: 1 DF, 1X/DAY (PM)
  23. B6 [Concomitant]
     Active Substance: PYRIDOXINE HYDROCHLORIDE
     Dosage: 100 MG, UNK
  24. SAMBUCOL [Concomitant]
     Indication: UPPER RESPIRATORY TRACT INFECTION
     Dosage: UNK, AS NEEDED
  25. PREDNISONE. [Concomitant]
     Active Substance: PREDNISONE
     Indication: STRESS
     Dosage: 10 MG, DAILY (7.5MG AM, 1.25 MG NOON, AND 1.25MG 6 PM)
     Route: 065
     Dates: start: 2011
  26. NYSTATIN. [Concomitant]
     Active Substance: NYSTATIN
     Indication: RASH
     Dosage: UNK UNK, AS NEEDED
  27. VITAMIN B12 [Concomitant]
     Active Substance: CYANOCOBALAMIN
     Dosage: 1000 UG, UNK
  28. PROPRANOLOL [Concomitant]
     Active Substance: PROPRANOLOL HYDROCHLORIDE
     Dosage: 5 MG, 2X/DAY (4PM AND 4AM, BREAK TABLET TO ACHIEVE 5MG DOSE)
  29. DIFLUCAN [Concomitant]
     Active Substance: FLUCONAZOLE
     Indication: VULVOVAGINAL MYCOTIC INFECTION
     Dosage: UNK, AS NEEDED 2-3 PER WEEK
  30. GENTAMICIN SULFATE. [Concomitant]
     Active Substance: GENTAMICIN SULFATE
     Indication: RASH ERYTHEMATOUS
     Dosage: UNK UNK, AS NEEDED
  31. GINKGO BILOBA [Concomitant]
     Active Substance: GINKGO
     Dosage: 60 MG, 2X/DAY
  32. VITAMIN K2 [MENAQUINONE] [Concomitant]
     Dosage: 1200 UG, DAILY

REACTIONS (10)
  - Drug ineffective [Recovered/Resolved]
  - Blood pressure increased [Recovered/Resolved]
  - Heart rate decreased [Recovered/Resolved]
  - Ear disorder [Unknown]
  - Supraventricular tachycardia [Recovered/Resolved]
  - Condition aggravated [Recovered/Resolved]
  - Presyncope [Recovered/Resolved]
  - Emotional disorder [Unknown]
  - Dizziness [Recovered/Resolved]
  - Vitamin B2 deficiency [Unknown]

NARRATIVE: CASE EVENT DATE: 201907
